FAERS Safety Report 19158705 (Version 1)
Quarter: 2021Q2

REPORT INFORMATION
  Report Type: Spontaneous
  Country: ZA (occurrence: ZA)
  Receive Date: 20210420
  Receipt Date: 20210420
  Transmission Date: 20210717
  Serious: Yes (Other)
  Sender: FDA-Public Use
  Company Number: ZA-MACLEODS PHARMACEUTICALS US LTD-MAC2021030837

PATIENT

DRUGS (4)
  1. AZATHIOPRINE. [Suspect]
     Active Substance: AZATHIOPRINE
     Indication: UVEITIS
     Dosage: 100 MILLIGRAM, QD, 2 MG/KG
  2. TRIAMCINOLONE ACETONIDE. [Suspect]
     Active Substance: TRIAMCINOLONE ACETONIDE
     Indication: MACULAR OEDEMA
     Dosage: 4 MILLIGRAM, SINGLE, INJECTION
     Dates: start: 201102, end: 201102
  3. PREDNISOLONE 10 MG [Suspect]
     Active Substance: PREDNISOLONE
     Indication: UVEITIS
     Dosage: 10 MILLIGRAM
     Route: 048
  4. GANCICLOVIR. [Suspect]
     Active Substance: GANCICLOVIR
     Indication: CYTOMEGALOVIRUS CHORIORETINITIS
     Dosage: 2 MILLIGRAM, TWICE WEEKLY, INTRAVITREOUS INJECTION

REACTIONS (3)
  - Cytomegalovirus chorioretinitis [Recovering/Resolving]
  - Necrotising retinitis [Unknown]
  - Rhegmatogenous retinal detachment [Unknown]
